FAERS Safety Report 23829634 (Version 1)
Quarter: 2024Q2

REPORT INFORMATION
  Report Type: Spontaneous
  Country: FR (occurrence: FR)
  Receive Date: 20240508
  Receipt Date: 20240508
  Transmission Date: 20240716
  Serious: Yes (Disabling)
  Sender: FDA-Public Use
  Company Number: FR-BIOGEN-2024BI01263256

PATIENT
  Age: 34 Year
  Sex: Female

DRUGS (1)
  1. TYSABRI [Suspect]
     Active Substance: NATALIZUMAB
     Indication: Multiple sclerosis
     Route: 050
     Dates: start: 20200515

REACTIONS (2)
  - Gingival recession [Not Recovered/Not Resolved]
  - Periodontitis [Not Recovered/Not Resolved]

NARRATIVE: CASE EVENT DATE: 20240412
